FAERS Safety Report 4698335-0 (Version None)
Quarter: 2005Q2

REPORT INFORMATION
  Report Type: 
  Country: None (occurrence: None)
  Receive Date: 20050623
  Receipt Date: 20050616
  Transmission Date: 20051028
  Serious: Yes (Life-Threatening, Hospitalization)
  Sender: FDA-Public Use
  Company Number: CA-BRISTOL-MYERS SQUIBB COMPANY-13006564

PATIENT
  Age: 77 Year
  Sex: Male
  Weight: 110 kg

DRUGS (12)
  1. TEQUIN [Suspect]
     Indication: RESPIRATORY TRACT INFECTION
     Route: 048
     Dates: end: 20050405
  2. AMARYL [Concomitant]
  3. INSULIN [Concomitant]
     Dosage: 30/70 FORMULATION 18 UNITS IN THE MORNING AND 12 UNIT AT NIGHT
  4. LIPITOR [Concomitant]
  5. LASIX [Concomitant]
  6. ATACAND [Concomitant]
  7. FLOMAX [Concomitant]
  8. QUININE SULFATE [Concomitant]
  9. COUMADIN [Concomitant]
     Dosage: 3 MG 6 DAYS PER WEEK, 4 MG ONCE PER WEEK
  10. PREVACID [Concomitant]
  11. CLONIDINE [Concomitant]
     Dosage: 0.1 MG TWICE DAILY AND 0.2 MG ONCE AT BEDTIME
  12. ALLOPURINOL [Concomitant]

REACTIONS (2)
  - HYPERGLYCAEMIA [None]
  - HYPOGLYCAEMIA [None]
